FAERS Safety Report 7055407-3 (Version None)
Quarter: 2010Q4

REPORT INFORMATION
  Report Type: 
  Country: None (occurrence: None)
  Receive Date: 20101019
  Receipt Date: 20101019
  Transmission Date: 20110411
  Serious: Yes (Life-Threatening, Hospitalization, Disabling)
  Sender: FDA-Public Use
  Company Number: None

PATIENT
  Sex: Male
  Weight: 72.5755 kg

DRUGS (2)
  1. CHILDREN'S ALLERGY RELIEF, 12.5 MG/5ML, PERRIGO ALLEGAN, MI [Suspect]
     Indication: INSOMNIA
     Dosage: 4 TEASPOONS X 2 DOSES X 2 DAYS ORAL
     Route: 048
     Dates: start: 20100130, end: 20100131
  2. CHILDREN'S ALLERGY RELIEF, 12.5 MG/5ML, PERRIGO ALLEGAN, MI [Suspect]

REACTIONS (7)
  - ARRHYTHMIA [None]
  - DRUG EFFECT DECREASED [None]
  - HEADACHE [None]
  - MUSCLE TWITCHING [None]
  - PALPITATIONS [None]
  - TINNITUS [None]
  - VISION BLURRED [None]
